FAERS Safety Report 25960757 (Version 1)
Quarter: 2025Q4

REPORT INFORMATION
  Report Type: Spontaneous
  Country: EU (occurrence: None)
  Receive Date: 20251027
  Receipt Date: 20251027
  Transmission Date: 20260118
  Serious: Yes (Life-Threatening, Other)
  Sender: ENDO
  Company Number: EU-ENDO USA, INC.-2025-001885

PATIENT
  Age: 38 Year
  Sex: Male

DRUGS (2)
  1. AVEED [Suspect]
     Active Substance: TESTOSTERONE UNDECANOATE
     Indication: Klinefelter^s syndrome
     Dosage: 1000 MILLIGRAM, MONTHLY
  2. ESCITALOPRAM [Suspect]
     Active Substance: ESCITALOPRAM OXALATE
     Indication: Klinefelter^s syndrome
     Dosage: UNK UNKNOWN, UNKNOWN
     Route: 065

REACTIONS (7)
  - Brugada syndrome [Recovering/Resolving]
  - Blood testosterone increased [Recovering/Resolving]
  - Blood pressure systolic decreased [Recovering/Resolving]
  - Disturbance in attention [Recovering/Resolving]
  - Anxiety [Recovering/Resolving]
  - Fatigue [Recovering/Resolving]
  - Myalgia [Recovering/Resolving]
